FAERS Safety Report 9337688 (Version 1)
Quarter: 2013Q2

REPORT INFORMATION
  Report Type: Spontaneous
  Country: BR (occurrence: BR)
  Receive Date: 20130607
  Receipt Date: 20130607
  Transmission Date: 20140414
  Serious: Yes (Hospitalization, Other)
  Sender: FDA-Public Use
  Company Number: BR-ASTRAZENECA-2013SE38231

PATIENT
  Age: 79 Year
  Sex: Female
  Weight: 75 kg

DRUGS (3)
  1. ATACAND HCT [Suspect]
     Indication: HYPERTENSION
     Dosage: TWO TIMES A DAY
     Route: 048
     Dates: start: 2005, end: 20130527
  2. RIVOTRIL [Concomitant]
     Indication: SEDATIVE THERAPY
     Dates: start: 2012
  3. ENALAPRIL [Concomitant]
     Indication: HYPERTENSION

REACTIONS (4)
  - Diabetes mellitus [Recovered/Resolved]
  - Cerebrovascular accident [Recovered/Resolved]
  - Hypertension [Recovered/Resolved]
  - Off label use [Not Recovered/Not Resolved]
